FAERS Safety Report 20575469 (Version 1)
Quarter: 2022Q1

REPORT INFORMATION
  Report Type: Spontaneous
  Country: US (occurrence: US)
  Receive Date: 20220310
  Receipt Date: 20220310
  Transmission Date: 20220423
  Serious: No
  Sender: FDA-Public Use
  Company Number: US-JNJFOC-20220245685

PATIENT
  Age: 59 Year
  Sex: Female

DRUGS (4)
  1. ZYRTEC [Suspect]
     Active Substance: CETIRIZINE HYDROCHLORIDE
     Indication: Urticaria
     Route: 065
  2. COVID-19 VACCINE [Concomitant]
     Indication: Immunisation
     Dosage: 1ST DOSE?ANATOMICAL SITE: RIGHT DELTOID
     Route: 065
     Dates: start: 20210408
  3. COVID-19 VACCINE [Concomitant]
     Dosage: 2ND DOSE?ANATOMICAL SITE: LEFT DELTOID
     Route: 065
     Dates: start: 20210429
  4. COVID-19 VACCINE [Concomitant]
     Dosage: 3RD DOSE?ANATOMICAL SITE: LEFT DELTOID
     Route: 065
     Dates: start: 20211216

REACTIONS (3)
  - Urticaria [Not Recovered/Not Resolved]
  - Product use in unapproved indication [Unknown]
  - Overdose [Unknown]
